FAERS Safety Report 4887148-2 (Version None)
Quarter: 2006Q1

REPORT INFORMATION
  Report Type: 
  Country: None (occurrence: None)
  Receive Date: 20060120
  Receipt Date: 20051005
  Transmission Date: 20060701
  Serious: Yes (Death, Hospitalization)
  Sender: FDA-Public Use
  Company Number: US-MERCK-0510USA04611

PATIENT
  Age: 81 Year
  Sex: Female

DRUGS (9)
  1. VIOXX [Suspect]
     Route: 048
     Dates: start: 20000101
  2. COUMADIN [Concomitant]
     Route: 065
  3. COUMADIN [Concomitant]
     Route: 065
  4. PRINIVIL [Concomitant]
     Route: 048
  5. TOPROL-XL [Concomitant]
     Route: 065
  6. RESCULA [Concomitant]
     Route: 065
  7. PREMARIN [Concomitant]
     Route: 065
  8. LEVOXYL [Concomitant]
     Route: 065
  9. CARDIZEM [Concomitant]
     Route: 065

REACTIONS (8)
  - ATRIAL FIBRILLATION [None]
  - BUNDLE BRANCH BLOCK RIGHT [None]
  - CARDIAC VALVE DISEASE [None]
  - CARDIOVASCULAR DISORDER [None]
  - CEREBRAL HAEMORRHAGE [None]
  - CEREBROVASCULAR ACCIDENT [None]
  - DYSPNOEA [None]
  - EMBOLISM [None]
